FAERS Safety Report 10223875 (Version 2)
Quarter: 2014Q2

REPORT INFORMATION
  Report Type: Spontaneous
  Country: US (occurrence: US)
  Receive Date: 20140609
  Receipt Date: 20140609
  Transmission Date: 20141212
  Serious: No
  Sender: FDA-Public Use
  Company Number: US-DRREDDYS-USA/USA/14/0039112

PATIENT
  Age: 79 Year
  Sex: Male

DRUGS (3)
  1. MUCINEX ALLERGY (FEXOFENADINE) [Suspect]
     Indication: EYE PRURITUS
     Route: 048
  2. MUCINEX ALLERGY (FEXOFENADINE) [Suspect]
     Indication: NASAL DISCOMFORT
  3. FLUTICASONE [Concomitant]
     Indication: HYPERSENSITIVITY
     Route: 045

REACTIONS (2)
  - Drug ineffective [Unknown]
  - Product quality issue [Unknown]
